FAERS Safety Report 24362081 (Version 2)
Quarter: 2024Q4

REPORT INFORMATION
  Report Type: Report from Study
  Country: CA (occurrence: CA)
  Receive Date: 20240925
  Receipt Date: 20241202
  Transmission Date: 20250115
  Serious: No
  Sender: SANDOZ
  Company Number: CA-SANDOZ-SDZ2024CA082403

PATIENT
  Sex: Female

DRUGS (2)
  1. ERELZI [Suspect]
     Active Substance: ETANERCEPT-SZZS
     Indication: Rheumatoid arthritis
     Dosage: 50 MG, QW
     Route: 058
     Dates: start: 20240729
  2. ERELZI [Suspect]
     Active Substance: ETANERCEPT-SZZS
     Dosage: 50 MG (EVERY 5 DAYS)
     Route: 058
     Dates: start: 20240729

REACTIONS (3)
  - Total lung capacity decreased [Unknown]
  - Asthma [Unknown]
  - Off label use [Unknown]
